FAERS Safety Report 14519282 (Version 1)
Quarter: 2018Q1

REPORT INFORMATION
  Report Type: Spontaneous
  Country: US (occurrence: US)
  Receive Date: 20180209
  Receipt Date: 20180209
  Transmission Date: 20180509
  Serious: Yes (Other)
  Sender: FDA-Public Use
  Company Number: None

PATIENT
  Age: 57 Year
  Sex: Female
  Weight: 67.5 kg

DRUGS (11)
  1. FLURBUPROFEN [Concomitant]
  2. ASMANEX [Concomitant]
     Active Substance: MOMETASONE FUROATE
  3. MORPHINE [Concomitant]
     Active Substance: MORPHINE
  4. ESOMOPRASOL [Concomitant]
  5. PROLIA [Concomitant]
     Active Substance: DENOSUMAB
  6. CYMBALTA [Concomitant]
     Active Substance: DULOXETINE HYDROCHLORIDE
  7. VITAMIN D [Concomitant]
     Active Substance: CHOLECALCIFEROL
  8. CHANTIX [Suspect]
     Active Substance: VARENICLINE TARTRATE
     Indication: SMOKING CESSATION THERAPY
     Route: 048
  9. TOPAMAX [Concomitant]
     Active Substance: TOPIRAMATE
  10. PEPCID [Concomitant]
     Active Substance: FAMOTIDINE
  11. DILAUDID [Concomitant]
     Active Substance: HYDROMORPHONE HYDROCHLORIDE

REACTIONS (4)
  - Hiatus hernia [None]
  - Nausea [None]
  - Vomiting [None]
  - Constipation [None]
